FAERS Safety Report 13803676 (Version 2)
Quarter: 2017Q3

REPORT INFORMATION
  Report Type: Report from Study
  Country: None (occurrence: DE)
  Receive Date: 20170728
  Receipt Date: 20170914
  Transmission Date: 20171127
  Serious: Yes (Hospitalization, Other)
  Sender: FDA-Public Use
  Company Number: DE-ABBVIE-17P-062-2051178-00

PATIENT
  Age: 84 Year
  Sex: Female
  Weight: 83 kg

DRUGS (3)
  1. LEVETIRACETAM. [Concomitant]
     Active Substance: LEVETIRACETAM
     Indication: EPILEPSY
     Route: 048
  2. DUODOPA [Suspect]
     Active Substance: CARBIDOPA\LEVODOPA
     Indication: PARKINSON^S DISEASE
     Dosage: DOSE ADJUSTMENT PHASE?1.5ML/H
     Route: 050
     Dates: start: 20170720
  3. RIVASTIGMIN PATCHES [Concomitant]
     Indication: DEMENTIA

REACTIONS (2)
  - Atypical pneumonia [Unknown]
  - Post procedural pneumonia [Recovering/Resolving]

NARRATIVE: CASE EVENT DATE: 201707
